FAERS Safety Report 13924050 (Version 1)
Quarter: 2017Q3

REPORT INFORMATION
  Report Type: Spontaneous
  Country: US (occurrence: None)
  Receive Date: 20170830
  Receipt Date: 20170830
  Transmission Date: 20171127
  Serious: Yes (Hospitalization)
  Sender: FDA-Public Use
  Company Number: None

PATIENT
  Age: 38 Year
  Sex: Male

DRUGS (1)
  1. OPSUMIT [Suspect]
     Active Substance: MACITENTAN
     Indication: PULMONARY EMBOLISM
     Route: 048
     Dates: start: 20151209

REACTIONS (4)
  - Respiratory failure [None]
  - Foaming at mouth [None]
  - Pneumonia [None]
  - Unresponsive to stimuli [None]

NARRATIVE: CASE EVENT DATE: 20170726
